FAERS Safety Report 12218433 (Version 1)
Quarter: 2016Q1

REPORT INFORMATION
  Report Type: Spontaneous
  Country: NO (occurrence: NO)
  Receive Date: 20160329
  Receipt Date: 20160329
  Transmission Date: 20160526
  Serious: Yes (Other)
  Sender: FDA-Public Use
  Company Number: NO-ASTRAZENECA-2016SE31198

PATIENT
  Age: 51 Year
  Sex: Female

DRUGS (7)
  1. GEFITINIB [Suspect]
     Active Substance: GEFITINIB
     Indication: LUNG ADENOCARCINOMA
     Dosage: UNK
     Route: 048
     Dates: start: 2014
  2. OSIMERTINIB [Suspect]
     Active Substance: OSIMERTINIB
     Indication: LUNG ADENOCARCINOMA
     Route: 048
     Dates: start: 20150821
  3. PEMETREXED [Suspect]
     Active Substance: PEMETREXED
     Indication: LUNG ADENOCARCINOMA
     Dosage: 5 TREATMENTS
     Route: 065
     Dates: start: 20141128
  4. GEFITINIB [Suspect]
     Active Substance: GEFITINIB
     Indication: LUNG ADENOCARCINOMA
     Dosage: UNK
     Route: 048
     Dates: start: 2013
  5. VINORELBINE [Suspect]
     Active Substance: VINORELBINE\VINORELBINE TARTRATE
     Indication: LUNG ADENOCARCINOMA
     Dosage: 3 TREATMENTS
     Route: 065
     Dates: start: 201111
  6. GEFITINIB [Suspect]
     Active Substance: GEFITINIB
     Indication: LUNG ADENOCARCINOMA
     Dosage: UNK
     Route: 048
     Dates: start: 20120130
  7. CARBOPLATIN. [Suspect]
     Active Substance: CARBOPLATIN
     Indication: LUNG ADENOCARCINOMA
     Dosage: 3 TREATMENTS
     Route: 065
     Dates: start: 201111

REACTIONS (11)
  - Hyperplasia [Unknown]
  - Disease recurrence [Unknown]
  - Chest pain [Unknown]
  - Diarrhoea [Unknown]
  - Gene mutation [Unknown]
  - Malignant neoplasm progression [Unknown]
  - Flatulence [Unknown]
  - Blood creatinine increased [Unknown]
  - Mouth ulceration [Unknown]
  - Drug intolerance [Unknown]
  - Onychoclasis [Unknown]

NARRATIVE: CASE EVENT DATE: 201304
